FAERS Safety Report 18252901 (Version 1)
Quarter: 2020Q3

REPORT INFORMATION
  Report Type: Spontaneous
  Country: US (occurrence: US)
  Receive Date: 20200910
  Receipt Date: 20200910
  Transmission Date: 20201103
  Serious: No
  Sender: FDA-Public Use
  Company Number: US-FARMAPROD-202004-0594

PATIENT
  Age: 45 Year
  Sex: Male

DRUGS (3)
  1. ARTIFICIAL TEARS [Concomitant]
     Active Substance: GLYCERIN\HYPROMELLOSES\POLYETHYLENE GLYCOL 400
     Indication: DRY EYE
     Dosage: FROM 1 TO 4 TIMES A DAY
  2. OXERVATE [Suspect]
     Active Substance: CENEGERMIN-BKBJ
     Indication: HERPES OPHTHALMIC
  3. OXERVATE [Suspect]
     Active Substance: CENEGERMIN-BKBJ
     Indication: EYELID DISORDER

REACTIONS (2)
  - Eye pain [Recovered/Resolved]
  - Eye inflammation [Not Recovered/Not Resolved]

NARRATIVE: CASE EVENT DATE: 20200404
